FAERS Safety Report 15345824 (Version 2)
Quarter: 2018Q3

REPORT INFORMATION
  Report Type: Spontaneous
  Country: US (occurrence: US)
  Receive Date: 20180904
  Receipt Date: 20180910
  Transmission Date: 20181010
  Serious: No
  Sender: FDA-Public Use
  Company Number: US-SHIRE-US201833816

PATIENT
  Age: 89 Year
  Sex: Female
  Weight: 65.76 kg

DRUGS (1)
  1. XIIDRA [Suspect]
     Active Substance: LIFITEGRAST
     Indication: PRODUCT USED FOR UNKNOWN INDICATION
     Dosage: 1 GTT, 2X/DAY:BID 5% SOLUTION
     Route: 047
     Dates: start: 2018

REACTIONS (7)
  - Product quality issue [Unknown]
  - Product quality issue [Not Recovered/Not Resolved]
  - Visual impairment [Unknown]
  - Instillation site pain [Recovered/Resolved]
  - Instillation site pain [Not Recovered/Not Resolved]
  - Drug ineffective [Unknown]
  - Condition aggravated [Not Recovered/Not Resolved]

NARRATIVE: CASE EVENT DATE: 2018
